FAERS Safety Report 7077499-8 (Version None)
Quarter: 2010Q4

REPORT INFORMATION
  Report Type: 
  Country: None (occurrence: None)
  Receive Date: 20101101
  Receipt Date: 20101021
  Transmission Date: 20110411
  Serious: Yes (Hospitalization)
  Sender: FDA-Public Use
  Company Number: SE-ABBOTT-10P-150-0676503-00

PATIENT
  Age: 61 Year
  Sex: Female

DRUGS (20)
  1. KLACID [Suspect]
     Indication: GASTRITIS
     Route: 048
     Dates: end: 20100913
  2. KLACID [Interacting]
     Indication: HELICOBACTER TEST POSITIVE
  3. SIMVASTATIN [Interacting]
     Indication: HYPERLIPIDAEMIA
     Route: 048
     Dates: end: 20100913
  4. SIMVASTATIN [Interacting]
     Indication: HYPERTRIGLYCERIDAEMIA
  5. NEXIUM [Interacting]
     Indication: GASTRITIS
     Dosage: TABLET 1 (NEXIUM)
     Route: 048
     Dates: end: 20100913
  6. NEXIUM [Interacting]
     Indication: HELICOBACTER TEST POSITIVE
     Dosage: TABLET 2 (AMIMOX)
     Route: 048
     Dates: end: 20100913
  7. INSULATARD [Concomitant]
     Indication: PRODUCT USED FOR UNKNOWN INDICATION
     Route: 050
  8. KALCIPOS-D [Concomitant]
     Indication: PRODUCT USED FOR UNKNOWN INDICATION
  9. FELODIPINE [Concomitant]
     Indication: PRODUCT USED FOR UNKNOWN INDICATION
  10. KLOZAPIN [Concomitant]
     Indication: PRODUCT USED FOR UNKNOWN INDICATION
  11. NITROMEX [Concomitant]
     Indication: PRODUCT USED FOR UNKNOWN INDICATION
  12. ACETAMINOPHEN [Concomitant]
     Indication: PRODUCT USED FOR UNKNOWN INDICATION
  13. IMPUGAN [Concomitant]
     Indication: PRODUCT USED FOR UNKNOWN INDICATION
  14. LASIX [Concomitant]
     Indication: PRODUCT USED FOR UNKNOWN INDICATION
  15. CISORDINOL [Concomitant]
     Indication: PRODUCT USED FOR UNKNOWN INDICATION
  16. DAKTACORT [Concomitant]
     Indication: PRODUCT USED FOR UNKNOWN INDICATION
     Dosage: 20MG/G+10MG/G
  17. ASPIRIN [Concomitant]
     Indication: PRODUCT USED FOR UNKNOWN INDICATION
  18. ATENOLOL [Concomitant]
     Indication: PRODUCT USED FOR UNKNOWN INDICATION
  19. NULYTELY [Concomitant]
     Indication: PRODUCT USED FOR UNKNOWN INDICATION
     Route: 048
  20. ATACAND [Concomitant]
     Indication: PRODUCT USED FOR UNKNOWN INDICATION

REACTIONS (2)
  - DRUG INTERACTION [None]
  - MYOPATHY [None]
